FAERS Safety Report 5427169-4 (Version None)
Quarter: 2007Q3

REPORT INFORMATION
  Report Type: 
  Country: None (occurrence: None)
  Receive Date: 20070828
  Receipt Date: 20070822
  Transmission Date: 20080115
  Serious: Yes (Other)
  Sender: FDA-Public Use
  Company Number: PHRM2007FR02072

PATIENT
  Age: 65 Year
  Sex: Male

DRUGS (2)
  1. FORADIL [Suspect]
     Indication: BRONCHOPNEUMOPATHY
     Dosage: 12 UG, QD
     Dates: start: 20040101, end: 20070201
  2. FORADIL [Suspect]
     Dosage: 12 UG, BID
     Dates: start: 20070201

REACTIONS (4)
  - AGITATION [None]
  - HEADACHE [None]
  - PALPITATIONS [None]
  - SUFFOCATION FEELING [None]
